FAERS Safety Report 6524311-9 (Version None)
Quarter: 2009Q4

REPORT INFORMATION
  Report Type: 
  Country: None (occurrence: None)
  Receive Date: 20091231
  Receipt Date: 20091224
  Transmission Date: 20100525
  Serious: Yes (Other)
  Sender: FDA-Public Use
  Company Number: JP-MERCK-0912USA01547

PATIENT
  Age: 44 Year
  Sex: Male
  Weight: 78 kg

DRUGS (1)
  1. COZAAR [Suspect]
     Indication: HYPERTENSION
     Route: 048
     Dates: start: 20091118, end: 20091203

REACTIONS (1)
  - ANAPHYLACTIC SHOCK [None]
